FAERS Safety Report 25702624 (Version 1)
Quarter: 2025Q3

REPORT INFORMATION
  Report Type: Spontaneous
  Country: US (occurrence: US)
  Receive Date: 20250819
  Receipt Date: 20250819
  Transmission Date: 20251020
  Serious: No
  Sender: REGENERON
  Company Number: US-REGENERON PHARMACEUTICALS, INC.-2025-080514

PATIENT
  Sex: Male

DRUGS (1)
  1. PRALUENT [Suspect]
     Active Substance: ALIROCUMAB
     Indication: Product used for unknown indication
     Dosage: 150 MG, Q2W (EVERY 2 WEEKS), STRENGTH: 150 MG/ML
     Route: 058

REACTIONS (3)
  - Injection site haemorrhage [Unknown]
  - Administration site wound [Unknown]
  - Injection site pain [Unknown]
